FAERS Safety Report 6816796-5 (Version None)
Quarter: 2010Q3

REPORT INFORMATION
  Report Type: 
  Country: None (occurrence: None)
  Receive Date: 20100706
  Receipt Date: 20100628
  Transmission Date: 20110219
  Serious: Yes (Other)
  Sender: FDA-Public Use
  Company Number: JP-JNJFOC-20100605664

PATIENT
  Age: 42 Year
  Sex: Female

DRUGS (2)
  1. ITRIZOLE [Suspect]
     Indication: ONYCHOMYCOSIS
     Route: 048
  2. CARBAMAZEPINE [Concomitant]
     Indication: VIITH NERVE PARALYSIS
     Route: 048

REACTIONS (1)
  - VIITH NERVE PARALYSIS [None]
